FAERS Safety Report 18791122 (Version 1)
Quarter: 2021Q1

REPORT INFORMATION
  Report Type: Spontaneous
  Country: US (occurrence: US)
  Receive Date: 20210126
  Receipt Date: 20210126
  Transmission Date: 20210419
  Serious: No
  Sender: FDA-Public Use
  Company Number: US-ROCHE-2715750

PATIENT
  Sex: Male

DRUGS (12)
  1. AZITHROMYCIN ANHYDROUS. [Concomitant]
     Active Substance: AZITHROMYCIN ANHYDROUS
  2. LORAZEPAM. [Concomitant]
     Active Substance: LORAZEPAM
  3. HYDROCODONE BITARTRATE AND ACETAMINOPHEN [Concomitant]
     Active Substance: ACETAMINOPHEN\HYDROCODONE BITARTRATE
     Dosage: DOSE: 5?325 MG
  4. PANTOPRAZOLE [Concomitant]
     Active Substance: PANTOPRAZOLE
  5. PREDNISONE. [Concomitant]
     Active Substance: PREDNISONE
  6. FINASTERIDE. [Concomitant]
     Active Substance: FINASTERIDE
  7. RESTASIS [Concomitant]
     Active Substance: CYCLOSPORINE
  8. METOPROLOL TARTRATE. [Concomitant]
     Active Substance: METOPROLOL TARTRATE
  9. METOPROLOL. [Concomitant]
     Active Substance: METOPROLOL
  10. RITUXAN [Suspect]
     Active Substance: RITUXIMAB
     Indication: INGUINAL HERNIA
     Dosage: DOSE: INFUSE, 500MG/50ML SDV INJ
     Route: 042
     Dates: start: 20170418
  11. DOXAZOSIN [Concomitant]
     Active Substance: DOXAZOSIN MESYLATE
  12. OMEPRAZOLE. [Concomitant]
     Active Substance: OMEPRAZOLE

REACTIONS (3)
  - Intentional product use issue [Unknown]
  - Off label use [Unknown]
  - No adverse event [Unknown]
